FAERS Safety Report 5045030-4 (Version None)
Quarter: 2006Q3

REPORT INFORMATION
  Report Type: 
  Country: None (occurrence: None)
  Receive Date: 20060707
  Receipt Date: 20051114
  Transmission Date: 20061208
  Serious: Yes (Hospitalization, Other)
  Sender: FDA-Public Use
  Company Number: PHNU2005DE03765

PATIENT
  Age: 62 Year
  Sex: Female
  Weight: 75 kg

DRUGS (3)
  1. FEMARA [Concomitant]
     Route: 048
  2. ZOMETA [Suspect]
     Indication: METASTASES TO BONE
     Dosage: 4 MG, QMO
     Route: 042
     Dates: start: 20040323, end: 20050802
  3. RADIOTHERAPY [Concomitant]
     Indication: METASTASES TO BONE
     Dosage: 40 IU, UNK
     Route: 061
     Dates: start: 20040401, end: 20040503

REACTIONS (10)
  - ANAESTHESIA [None]
  - BONE DISORDER [None]
  - BONE TRIMMING [None]
  - FACIAL PAIN [None]
  - IMPAIRED HEALING [None]
  - LOCAL ANAESTHESIA [None]
  - OSTEONECROSIS [None]
  - PLASTIC SURGERY [None]
  - TOOTH EXTRACTION [None]
  - X-RAY ABNORMAL [None]
